FAERS Safety Report 7820222-7 (Version None)
Quarter: 2011Q4

REPORT INFORMATION
  Report Type: 
  Country: None (occurrence: None)
  Receive Date: 20111018
  Receipt Date: 20111004
  Transmission Date: 20120403
  Serious: Yes (Hospitalization)
  Sender: FDA-Public Use
  Company Number: IT-ELI_LILLY_AND_COMPANY-IT201110000767

PATIENT
  Sex: Female

DRUGS (5)
  1. POLYETHYLENE GLYCOL [Concomitant]
     Dosage: 2 DF, QD
  2. CITALOPRAM [Concomitant]
     Dosage: 20 MG, QD
  3. CRESTOR [Concomitant]
     Dosage: 1 DF, QD
  4. PANTOPRAZOLE [Concomitant]
     Dosage: 40 MG, QD
  5. ZYPREXA [Suspect]
     Dosage: 5 MG, BID

REACTIONS (1)
  - ELECTROCARDIOGRAM QT PROLONGED [None]
